FAERS Safety Report 8588232-2 (Version None)
Quarter: 2012Q3

REPORT INFORMATION
  Report Type: 
  Country: None (occurrence: None)
  Receive Date: 20120813
  Receipt Date: 20120808
  Transmission Date: 20120928
  Serious: Yes (Other)
  Sender: FDA-Public Use
  Company Number: MY-US-EMD SERONO, INC.-7153332

PATIENT
  Age: 33 Year
  Sex: Female

DRUGS (4)
  1. PROPOFOL [Suspect]
     Indication: PRODUCT USED FOR UNKNOWN INDICATION
  2. FENTANYL [Suspect]
     Indication: PRODUCT USED FOR UNKNOWN INDICATION
  3. GONAL-F [Suspect]
     Indication: IN VITRO FERTILISATION
     Route: 058
     Dates: start: 20120507, end: 20120511
  4. CETROTIDE [Suspect]
     Indication: IN VITRO FERTILISATION

REACTIONS (1)
  - ANAEMIA [None]
